FAERS Safety Report 7510978-5 (Version None)
Quarter: 2011Q2

REPORT INFORMATION
  Report Type: 
  Country: None (occurrence: None)
  Receive Date: 20110531
  Receipt Date: 20110523
  Transmission Date: 20111010
  Serious: Yes (Other)
  Sender: FDA-Public Use
  Company Number: US-PFIZER INC-2010107142

PATIENT
  Sex: Female

DRUGS (5)
  1. CHANTIX [Suspect]
     Indication: SMOKING CESSATION THERAPY
     Dosage: UNK
     Dates: start: 20081015, end: 20081030
  2. XOPENEX [Concomitant]
     Indication: ASTHMA
     Dosage: UNK
     Dates: start: 20000101
  3. ZOLOFT [Concomitant]
     Indication: DEPRESSION
     Dosage: UNK
     Dates: start: 20060101, end: 20100101
  4. ZOLOFT [Concomitant]
     Indication: POST-TRAUMATIC STRESS DISORDER
  5. CHANTIX [Suspect]
     Dosage: UNK
     Dates: start: 20091027, end: 20091031

REACTIONS (5)
  - ANGER [None]
  - ANXIETY [None]
  - DEPRESSION [None]
  - ABNORMAL DREAMS [None]
  - AGGRESSION [None]
